FAERS Safety Report 7597261-7 (Version None)
Quarter: 2011Q3

REPORT INFORMATION
  Report Type: 
  Country: None (occurrence: None)
  Receive Date: 20110708
  Receipt Date: 20110121
  Transmission Date: 20111222
  Serious: No
  Sender: FDA-Public Use
  Company Number: US-GLAXOSMITHKLINE-A0908057A

PATIENT
  Age: 70 Year
  Sex: Female

DRUGS (4)
  1. AVAPRO [Concomitant]
  2. DICLOFENAC [Concomitant]
  3. NYSTATIN [Concomitant]
  4. FLOVENT [Suspect]
     Indication: ASTHMA
     Dosage: 2PUFF PER DAY
     Route: 055
     Dates: start: 19910101

REACTIONS (3)
  - CANDIDIASIS [None]
  - CHEST PAIN [None]
  - RASH [None]
